FAERS Safety Report 5347488-X (Version None)
Quarter: 2007Q2

REPORT INFORMATION
  Report Type: 
  Country: None (occurrence: None)
  Receive Date: 20070606
  Receipt Date: 20070601
  Transmission Date: 20071010
  Serious: Yes (Other)
  Sender: FDA-Public Use
  Company Number: PHNR2007AU01174

PATIENT
  Age: 15 Year
  Sex: Male

DRUGS (1)
  1. SIMULECT [Suspect]
     Dosage: 12 MG, ONCE/SINGLE
     Route: 042
     Dates: start: 20060426, end: 20060426

REACTIONS (3)
  - HYPOTENSION [None]
  - HYPOXIA [None]
  - WHEEZING [None]
